FAERS Safety Report 7250772-6 (Version None)
Quarter: 2011Q1

REPORT INFORMATION
  Report Type: 
  Country: None (occurrence: None)
  Receive Date: 20110119
  Receipt Date: 20110110
  Transmission Date: 20110831
  Serious: Yes (Other)
  Sender: FDA-Public Use
  Company Number: 019223

PATIENT
  Sex: Female
  Weight: 80 kg

DRUGS (9)
  1. DIAZEPAM [Concomitant]
  2. LAMICTAL [Concomitant]
  3. ARIPIPRAZOLE [Concomitant]
  4. TEGRETOL [Concomitant]
  5. TEGRETOL [Concomitant]
  6. VIMPAT [Suspect]
     Indication: FRONTAL LOBE EPILEPSY
     Dosage: 50 MG BID ORAL, 100 MG BID ORAL, PROGRESSIVE DECREASE OF DOSES ORAL
     Route: 048
     Dates: start: 20100408, end: 20100514
  7. VIMPAT [Suspect]
     Indication: FRONTAL LOBE EPILEPSY
     Dosage: 50 MG BID ORAL, 100 MG BID ORAL, PROGRESSIVE DECREASE OF DOSES ORAL
     Route: 048
     Dates: start: 20100701, end: 20100727
  8. VIMPAT [Suspect]
     Indication: FRONTAL LOBE EPILEPSY
     Dosage: 50 MG BID ORAL, 100 MG BID ORAL, PROGRESSIVE DECREASE OF DOSES ORAL
     Route: 048
     Dates: start: 20100515, end: 20100630
  9. EQUANIL [Concomitant]

REACTIONS (5)
  - ABNORMAL BEHAVIOUR [None]
  - BREATH ODOUR [None]
  - AGGRESSION [None]
  - GINGIVAL BLEEDING [None]
  - CONDITION AGGRAVATED [None]
